FAERS Safety Report 18930756 (Version 1)
Quarter: 2021Q1

REPORT INFORMATION
  Report Type: Spontaneous
  Country: US (occurrence: US)
  Receive Date: 20210223
  Receipt Date: 20210223
  Transmission Date: 20210420
  Serious: No
  Sender: FDA-Public Use
  Company Number: US-BAUSCH-BL-2021-002849

PATIENT
  Age: 86 Year
  Sex: Male

DRUGS (1)
  1. LATANOPROST OPHTHALMIC SOLUTION 0.005% [Suspect]
     Active Substance: LATANOPROST
     Indication: GLAUCOMA
     Dosage: STARTED APPROXIMATELY 14/JAN/2021 OR 15/JAN/2021, ONE DROP IN EACH EYE
     Route: 047
     Dates: start: 202101

REACTIONS (2)
  - Lacrimation increased [Not Recovered/Not Resolved]
  - Ocular icterus [Recovering/Resolving]

NARRATIVE: CASE EVENT DATE: 202101
